FAERS Safety Report 24763358 (Version 4)
Quarter: 2025Q1

REPORT INFORMATION
  Report Type: Spontaneous
  Country: US (occurrence: US)
  Receive Date: 20241222
  Receipt Date: 20250325
  Transmission Date: 20250409
  Serious: Yes (Death, Hospitalization, Other)
  Sender: BRISTOL-MYERS SQUIBB COMPANY
  Company Number: US-BRISTOL-MYERS SQUIBB COMPANY-2024-196846

PATIENT
  Age: 80 Year
  Sex: Male

DRUGS (1)
  1. POMALYST [Suspect]
     Active Substance: POMALIDOMIDE
     Indication: Plasma cell myeloma
     Dosage: FREQUENCY: 21/7 CYCLIC; 21 DAYS ON 7 DAYS OFF
     Route: 048
     Dates: start: 20170913

REACTIONS (5)
  - Pneumonia [Fatal]
  - Influenza [Unknown]
  - Hypotension [Unknown]
  - Atrial fibrillation [Unknown]
  - Cardiac disorder [Fatal]
